FAERS Safety Report 9291637 (Version 1)
Quarter: 2013Q2

REPORT INFORMATION
  Report Type: Report from Study
  Country: LV (occurrence: LV)
  Receive Date: 20130516
  Receipt Date: 20130516
  Transmission Date: 20140414
  Serious: Yes (Hospitalization, Other)
  Sender: FDA-Public Use
  Company Number: LV-MYLANLABS-2013S1008674

PATIENT
  Age: 59 Year
  Sex: Female

DRUGS (4)
  1. GLIPIZIDE [Suspect]
     Indication: TYPE 2 DIABETES MELLITUS
     Route: 048
     Dates: start: 20091026, end: 20091210
  2. GLIPIZIDE [Suspect]
     Indication: TYPE 2 DIABETES MELLITUS
     Route: 048
     Dates: start: 20091213
  3. METFORMIN [Suspect]
     Indication: TYPE 2 DIABETES MELLITUS
     Route: 048
     Dates: start: 20091213
  4. LEVOTHYROXINE [Concomitant]
     Route: 048
     Dates: start: 20070106

REACTIONS (1)
  - Enterocolitis [Recovered/Resolved]
